FAERS Safety Report 5657955-7 (Version None)
Quarter: 2008Q1

REPORT INFORMATION
  Report Type: 
  Country: None (occurrence: None)
  Receive Date: 20080305
  Receipt Date: 20071221
  Transmission Date: 20080703
  Serious: Yes (Other)
  Sender: FDA-Public Use
  Company Number: 805#1#2007-00066

PATIENT
  Age: 66 Year
  Sex: Male

DRUGS (15)
  1. ALPROSTADIL [Suspect]
     Indication: ARTERIOVENOUS SHUNT OPERATION
     Dosage: 40 MCG, 80 MCG, INTRAVENOUS DRIP
     Route: 041
     Dates: start: 20071212, end: 20071212
  2. ALPROSTADIL [Suspect]
     Indication: ARTERIOVENOUS SHUNT OPERATION
     Dosage: 40 MCG, 80 MCG, INTRAVENOUS DRIP
     Route: 041
     Dates: start: 20071213, end: 20071213
  3. ALPROSTADIL [Suspect]
     Indication: ARTERIOVENOUS SHUNT OPERATION
     Dosage: 40 MCG, 80 MCG, INTRAVENOUS DRIP
     Route: 041
     Dates: start: 20071214, end: 20071214
  4. CEFAZOLIN SODIUM [Suspect]
     Indication: HEPATIC FUNCTION ABNORMAL
     Dosage: 1 G, ORAL
     Route: 048
     Dates: start: 20071212, end: 20071217
  5. CHARCOAL, ACTIVATED (CHARCOAL, ACTIVATED) [Concomitant]
  6. FUROSEMIDE [Concomitant]
  7. LAFUTIDINE [Concomitant]
  8. ALFACALCIDOL (ALFACALCIDOL) [Concomitant]
  9. AMLODIPINE BESYLATE [Concomitant]
  10. FERROUS CITRATE [Concomitant]
  11. CALCIUM POLYSTYRENE SULFONATE (CALCIUM POLYSTYRENE SULFONATE) [Concomitant]
  12. PREDNISOLONE [Concomitant]
  13. SPHERICAL CARBONACEOUS ADSORBENT [Concomitant]
  14. GLICLAZIDE (GLICLAZIDE) [Concomitant]
  15. VOGLIBOSE (VOGLIBOSE) [Concomitant]

REACTIONS (4)
  - ARTHRALGIA [None]
  - GAIT DISTURBANCE [None]
  - HEPATIC FUNCTION ABNORMAL [None]
  - MUSCLE SPASMS [None]
